FAERS Safety Report 10468806 (Version 1)
Quarter: 2014Q3

REPORT INFORMATION
  Report Type: Spontaneous
  Country: NL (occurrence: NL)
  Receive Date: 20140923
  Receipt Date: 20140923
  Transmission Date: 20150326
  Serious: Yes (Other)
  Sender: FDA-Public Use
  Company Number: NL-AMGEN-NLDSP2014071037

PATIENT
  Age: 72 Year
  Sex: Female

DRUGS (2)
  1. NPLATE [Suspect]
     Active Substance: ROMIPLOSTIM
     Indication: PRODUCT USED FOR UNKNOWN INDICATION
     Dosage: 1.5 ML, QWK
     Route: 058
  2. NPLATE [Suspect]
     Active Substance: ROMIPLOSTIM
     Route: 058

REACTIONS (1)
  - Deep vein thrombosis [Unknown]
